FAERS Safety Report 11614162 (Version 2)
Quarter: 2015Q4

REPORT INFORMATION
  Report Type: Spontaneous
  Country: FR (occurrence: FR)
  Receive Date: 20151008
  Receipt Date: 20151230
  Transmission Date: 20160304
  Serious: Yes (Hospitalization)
  Sender: FDA-Public Use
  Company Number: FR-CONCORDIA PHARMACEUTICALS INC.-CO-ZO-FR-2015-66

PATIENT
  Age: 59 Year
  Sex: Male

DRUGS (5)
  1. ZONEGRAN [Suspect]
     Active Substance: ZONISAMIDE
     Indication: PARTIAL SEIZURES
     Route: 048
     Dates: end: 20150902
  2. VIMPAT [Suspect]
     Active Substance: LACOSAMIDE
     Dosage: 100 MG DAILY
     Route: 041
     Dates: start: 20150903
  3. VIMPAT [Suspect]
     Active Substance: LACOSAMIDE
     Indication: PARTIAL SEIZURES
     Route: 048
     Dates: end: 20150901
  4. VIMPAT [Suspect]
     Active Substance: LACOSAMIDE
     Dosage: 400 MG
     Route: 048
     Dates: start: 20150902, end: 20150902
  5. ZONEGRAN [Suspect]
     Active Substance: ZONISAMIDE
     Dosage: 300 MG IN MORNING, 200 MG IN EVENING
     Route: 048
     Dates: start: 20150903

REACTIONS (2)
  - Status epilepticus [Recovered/Resolved]
  - Poisoning deliberate [Recovered/Resolved]

NARRATIVE: CASE EVENT DATE: 20150902
